FAERS Safety Report 24030857 (Version 2)
Quarter: 2024Q3

REPORT INFORMATION
  Report Type: Report from Study
  Country: GB (occurrence: GB)
  Receive Date: 20240628
  Receipt Date: 20240723
  Transmission Date: 20241016
  Serious: Yes (Other)
  Sender: APELLIS PHARMACEUTICALS
  Company Number: GB-BIOVITRUM-2024-GB-004522

PATIENT

DRUGS (1)
  1. PEGCETACOPLAN [Suspect]
     Active Substance: PEGCETACOPLAN
     Indication: Paroxysmal nocturnal haemoglobinuria
     Route: 058

REACTIONS (5)
  - Lower respiratory tract infection [Recovered/Resolved]
  - Dyspnoea [Unknown]
  - Tooth infection [Unknown]
  - Rash pruritic [Unknown]
  - Hypersensitivity [Unknown]
